FAERS Safety Report 10670996 (Version 2)
Quarter: 2015Q1

REPORT INFORMATION
  Report Type: Spontaneous
  Country: US (occurrence: None)
  Receive Date: 20141219
  Receipt Date: 20150126
  Transmission Date: 20150720
  Serious: Yes (Other)
  Sender: FDA-Public Use
  Company Number: 2014SMT00131

PATIENT
  Age: 64 Year
  Sex: Male
  Weight: 158.7 kg

DRUGS (3)
  1. VALSARTAN. [Concomitant]
     Active Substance: VALSARTAN
  2. REGRANEX [Suspect]
     Active Substance: BECAPLERMIN
     Indication: WOUND
     Dosage: UNK, 1X/DAY, TOPICAL
     Route: 061
     Dates: start: 20141023, end: 201411
  3. TOPROL XL [Concomitant]
     Active Substance: METOPROLOL SUCCINATE

REACTIONS (3)
  - Drug ineffective [None]
  - Skin graft [None]
  - Wound complication [None]

NARRATIVE: CASE EVENT DATE: 2014
